FAERS Safety Report 6258479-9 (Version None)
Quarter: 2009Q3

REPORT INFORMATION
  Report Type: 
  Country: None (occurrence: None)
  Receive Date: 20090707
  Receipt Date: 20090625
  Transmission Date: 20100115
  Serious: Yes (Death)
  Sender: FDA-Public Use
  Company Number: JP-PFIZER INC-2009225589

PATIENT
  Age: 70 Year

DRUGS (12)
  1. SUNITINIB MALATE [Suspect]
     Indication: HEPATIC NEOPLASM MALIGNANT
     Dosage: 37.5 MG, 1X/DAY
     Route: 048
     Dates: start: 20090409, end: 20090605
  2. VALSARTAN [Concomitant]
     Dosage: UNK
     Route: 048
     Dates: start: 20050101
  3. URSODIOL [Concomitant]
     Dosage: UNK
     Route: 048
     Dates: start: 20040101
  4. REBAMIPIDE [Concomitant]
     Dosage: UNK
     Route: 048
     Dates: start: 20020101
  5. MAGNESIUM OXIDE [Concomitant]
     Dosage: UNK
     Route: 048
     Dates: start: 20020101
  6. DIGESTIVES, INCL ENZYMES [Concomitant]
     Dosage: UNK
     Route: 048
     Dates: start: 20020101
  7. LACTOBACILLUS BIFIDUS, LYOPHILIZED [Concomitant]
     Dosage: UNK
     Route: 048
     Dates: start: 20020101
  8. LATANOPROST [Concomitant]
     Dosage: UNK
     Route: 047
     Dates: start: 20040101
  9. HYALURONATE SODIUM [Concomitant]
     Route: 047
     Dates: start: 20040101
  10. LEVOCABASTINE HYDROCHLORIDE [Concomitant]
     Dosage: UNK
     Route: 047
     Dates: start: 20070301
  11. LAXATIVES [Concomitant]
     Dosage: UNK
     Route: 048
     Dates: start: 19990101
  12. AMINO ACIDS NOS [Concomitant]
     Indication: HEPATIC CIRRHOSIS
     Route: 048
     Dates: start: 20090409

REACTIONS (2)
  - DISSEMINATED INTRAVASCULAR COAGULATION [None]
  - SEPSIS [None]
